FAERS Safety Report 9083930 (Version 1)
Quarter: 2013Q1

REPORT INFORMATION
  Report Type: Report from Study
  Country: US (occurrence: US)
  Receive Date: 20130130
  Receipt Date: 20130130
  Transmission Date: 20140127
  Serious: No
  Sender: FDA-Public Use
  Company Number: US-ABBOTT-12P-163-0987845-00

PATIENT
  Age: 25 Year
  Sex: Male

DRUGS (4)
  1. HUMIRA [Suspect]
     Indication: CROHN^S DISEASE
     Route: 058
     Dates: start: 20120810
  2. LIALDA [Concomitant]
     Indication: CROHN^S DISEASE
     Dosage: DAILY
  3. PREDNISONE [Concomitant]
     Indication: CROHN^S DISEASE
     Dosage: DAILY
  4. IRON [Concomitant]
     Indication: BLOOD IRON DECREASED
     Dosage: DAILY

REACTIONS (1)
  - Diarrhoea [Not Recovered/Not Resolved]
